FAERS Safety Report 18980013 (Version 3)
Quarter: 2021Q2

REPORT INFORMATION
  Report Type: Spontaneous
  Country: US (occurrence: US)
  Receive Date: 20210308
  Receipt Date: 20210401
  Transmission Date: 20210717
  Serious: No
  Sender: FDA-Public Use
  Company Number: US-MYLANLABS-2021M1012889

PATIENT
  Sex: Female

DRUGS (4)
  1. CLONIDINE TRANSDERMAL SYSTEM [Suspect]
     Active Substance: CLONIDINE
     Indication: HYPERTENSION
     Dosage: 0.3 MILLIGRAM, QD
     Route: 062
  2. MINOXIDIL. [Concomitant]
     Active Substance: MINOXIDIL
     Dosage: UNK
  3. AMLODIPINE [Concomitant]
     Active Substance: AMLODIPINE BESYLATE
     Dosage: UNK
  4. ATORVASTATIN [Concomitant]
     Active Substance: ATORVASTATIN
     Dosage: UNK

REACTIONS (7)
  - Blood pressure increased [Unknown]
  - Application site pruritus [Not Recovered/Not Resolved]
  - Malaise [Unknown]
  - Product adhesion issue [Not Recovered/Not Resolved]
  - Application site burn [Unknown]
  - Palpitations [Unknown]
  - Device leakage [Unknown]
